FAERS Safety Report 9461343 (Version 1)
Quarter: 2013Q3

REPORT INFORMATION
  Report Type: Spontaneous
  Country: US (occurrence: None)
  Receive Date: 20130814
  Receipt Date: 20130814
  Transmission Date: 20140515
  Serious: Yes (Other)
  Sender: FDA-Public Use
  Company Number: None

PATIENT
  Age: 51 Year
  Sex: Female
  Weight: 51.71 kg

DRUGS (6)
  1. ANASTROZOLE [Suspect]
     Indication: BREAST CANCER
     Dosage: 1 MG 30 1 DAILY BY MOUTH
     Route: 048
     Dates: start: 20130311, end: 20130405
  2. NEURONTIN [Concomitant]
  3. SINGULAR [Concomitant]
  4. MORPHIN [Concomitant]
  5. CALCIUM VITD [Concomitant]
  6. SENNA NATURAL LAXATIVE [Concomitant]

REACTIONS (5)
  - Gait disturbance [None]
  - Arthralgia [None]
  - Arthralgia [None]
  - Flushing [None]
  - Insomnia [None]
